FAERS Safety Report 16862139 (Version 2)
Quarter: 2019Q4

REPORT INFORMATION
  Report Type: Spontaneous
  Country: US (occurrence: US)
  Receive Date: 20190927
  Receipt Date: 20191016
  Transmission Date: 20200122
  Serious: Yes (Disabling, Other)
  Sender: FDA-Public Use
  Company Number: US-PFIZER INC-2019413224

PATIENT
  Age: 24 Year
  Sex: Male
  Weight: 97.51 kg

DRUGS (1)
  1. DILANTIN [Suspect]
     Active Substance: PHENYTOIN
     Dosage: 400 MG, DAILY (QUANTITY FOR 90 DAYS: 360)

REACTIONS (5)
  - Asthenia [Unknown]
  - Loss of personal independence in daily activities [Unknown]
  - Epilepsy [Unknown]
  - Bipolar disorder [Unknown]
  - Seizure [Unknown]

NARRATIVE: CASE EVENT DATE: 19900118
